FAERS Safety Report 8005483-6 (Version None)
Quarter: 2011Q4

REPORT INFORMATION
  Report Type: 
  Country: None (occurrence: None)
  Receive Date: 20111223
  Receipt Date: 20111212
  Transmission Date: 20120403
  Serious: Yes (Life-Threatening, Hospitalization, Other)
  Sender: FDA-Public Use
  Company Number: PHHY2011JP102674

PATIENT
  Age: 84 Year
  Sex: Female

DRUGS (5)
  1. CELECOXIB [Concomitant]
     Dosage: 200 MG
     Route: 048
     Dates: start: 20110225
  2. FAMVIR [Suspect]
     Indication: HERPES ZOSTER
     Dosage: 500 MG, TID
     Route: 048
     Dates: start: 20111011, end: 20111011
  3. ALENDRONATE SODIUM [Concomitant]
     Dosage: 35 MG
     Route: 048
     Dates: start: 20061215, end: 20061201
  4. ARASENA A [Concomitant]
     Dates: start: 20111011
  5. LYRICA [Concomitant]
     Dosage: 300 MG
     Route: 048
     Dates: start: 20100903

REACTIONS (2)
  - ALTERED STATE OF CONSCIOUSNESS [None]
  - FALL [None]
